FAERS Safety Report 5326661-0 (Version None)
Quarter: 2007Q2

REPORT INFORMATION
  Report Type: 
  Country: None (occurrence: None)
  Receive Date: 20070516
  Receipt Date: 20070504
  Transmission Date: 20071010
  Serious: Yes (Other)
  Sender: FDA-Public Use
  Company Number: US-PFIZER INC-2006058635

PATIENT
  Sex: Male
  Weight: 82.6 kg

DRUGS (8)
  1. VIAGRA [Suspect]
     Indication: ERECTILE DYSFUNCTION
     Dates: start: 19980701, end: 20050528
  2. FLONASE [Concomitant]
  3. TYLENOL [Concomitant]
     Dates: end: 20061027
  4. VITAMIN CAP [Concomitant]
  5. CALCIUM CHLORIDE [Concomitant]
  6. MAALOX FAST BLOCKER [Concomitant]
  7. ASCORBIC ACID [Concomitant]
  8. VITAMIN E [Concomitant]

REACTIONS (3)
  - BLINDNESS [None]
  - RETINAL ARTERY OCCLUSION [None]
  - VISUAL DISTURBANCE [None]
